FAERS Safety Report 13503075 (Version 3)
Quarter: 2018Q1

REPORT INFORMATION
  Report Type: Spontaneous
  Country: US (occurrence: US)
  Receive Date: 20170502
  Receipt Date: 20180108
  Transmission Date: 20180508
  Serious: No
  Sender: FDA-Public Use
  Company Number: US-LUNDBECK-DKLU2029430

PATIENT
  Age: 67 Year
  Sex: Female

DRUGS (5)
  1. NORTHERA [Interacting]
     Active Substance: DROXIDOPA
     Route: 065
  2. NORTHERA [Interacting]
     Active Substance: DROXIDOPA
     Route: 065
     Dates: start: 201704
  3. NORTHERA [Interacting]
     Active Substance: DROXIDOPA
     Route: 065
  4. NORTHERA [Interacting]
     Active Substance: DROXIDOPA
     Route: 065
     Dates: start: 201704
  5. NORTHERA [Suspect]
     Active Substance: DROXIDOPA
     Indication: PRODUCT USED FOR UNKNOWN INDICATION
     Route: 065
     Dates: start: 20170412

REACTIONS (20)
  - Pancreatic disorder [Recovered/Resolved]
  - Blood glucose decreased [Recovering/Resolving]
  - Supine hypertension [Recovering/Resolving]
  - Circumstance or information capable of leading to medication error [Unknown]
  - Asthenia [Unknown]
  - Balance disorder [Recovered/Resolved]
  - Head discomfort [Recovered/Resolved]
  - Loss of personal independence in daily activities [Recovered/Resolved]
  - Drug interaction [Recovered/Resolved]
  - Disturbance in attention [Recovering/Resolving]
  - Gastrointestinal disorder [Recovering/Resolving]
  - Heart rate increased [Recovering/Resolving]
  - Presyncope [Unknown]
  - Headache [Recovering/Resolving]
  - Blood glucose abnormal [Recovered/Resolved]
  - Therapeutic response unexpected [Unknown]
  - Blood pressure increased [Recovered/Resolved]
  - Dizziness [Unknown]
  - Blood pressure fluctuation [Unknown]
  - Malaise [Unknown]

NARRATIVE: CASE EVENT DATE: 20170412
